FAERS Safety Report 5572831-6 (Version None)
Quarter: 2007Q4

REPORT INFORMATION
  Report Type: 
  Country: None (occurrence: None)
  Receive Date: 20071223
  Receipt Date: 20071217
  Transmission Date: 20080405
  Serious: Yes (Hospitalization)
  Sender: FDA-Public Use
  Company Number: PHHO2007BR19748

PATIENT
  Age: 28 Year
  Sex: Female
  Weight: 47.2 kg

DRUGS (3)
  1. CERTICAN [Suspect]
     Indication: RENAL TRANSPLANT
     Route: 048
  2. NEORAL [Suspect]
     Indication: RENAL TRANSPLANT
     Dosage: 300 MG, BID
     Route: 048
     Dates: start: 20071114, end: 20071128
  3. PREDNISONE [Concomitant]

REACTIONS (3)
  - BLOOD CREATININE INCREASED [None]
  - DRUG INTERACTION [None]
  - THROMBOTIC MICROANGIOPATHY [None]
